FAERS Safety Report 19260588 (Version 1)
Quarter: 2021Q2

REPORT INFORMATION
  Report Type: Report from Study
  Country: US (occurrence: US)
  Receive Date: 20210514
  Receipt Date: 20210514
  Transmission Date: 20210717
  Serious: No
  Sender: FDA-Public Use
  Company Number: US-SUNOVION-2021SUN001480

PATIENT
  Sex: Female

DRUGS (2)
  1. KYNMOBI [Suspect]
     Active Substance: APOMORPHINE HYDROCHLORIDE
     Dosage: 10 MG
     Route: 060
     Dates: start: 20210414
  2. KYNMOBI [Suspect]
     Active Substance: APOMORPHINE HYDROCHLORIDE
     Dosage: 15 MG
     Route: 060
     Dates: start: 20210420

REACTIONS (8)
  - Malaise [Unknown]
  - Depressed mood [Unknown]
  - Gait disturbance [Unknown]
  - Nausea [Unknown]
  - Asthenia [Unknown]
  - Feeling hot [Unknown]
  - Retching [Unknown]
  - Dizziness [Unknown]

NARRATIVE: CASE EVENT DATE: 20210416
